FAERS Safety Report 20612368 (Version 1)
Quarter: 2022Q1

REPORT INFORMATION
  Report Type: Spontaneous
  Country: US (occurrence: US)
  Receive Date: 20220318
  Receipt Date: 20220318
  Transmission Date: 20220423
  Serious: Yes (Other)
  Sender: FDA-Public Use
  Company Number: US-MYLANLABS-2022M1020520

PATIENT
  Age: 31 Year
  Sex: Male

DRUGS (18)
  1. VORICONAZOLE [Suspect]
     Active Substance: VORICONAZOLE
     Indication: Acanthamoeba keratitis
     Dosage: UNK UNK, QH
     Route: 061
  2. VORICONAZOLE [Suspect]
     Active Substance: VORICONAZOLE
     Dosage: UNK UNK, Q2H
     Route: 061
  3. VORICONAZOLE [Suspect]
     Active Substance: VORICONAZOLE
     Indication: Acanthamoeba keratitis
     Dosage: 400 MILLIGRAM, QD
     Route: 048
  4. VORICONAZOLE [Suspect]
     Active Substance: VORICONAZOLE
     Indication: Acanthamoeba keratitis
     Dosage: UNK, 50 MICROGRAM/0.1ML; RECEIVED TWO INJECTIONS
  5. ACETAMINOPHEN [Suspect]
     Active Substance: ACETAMINOPHEN
     Indication: Eye pain
     Dosage: UNK
     Route: 048
  6. ACETAMINOPHEN [Suspect]
     Active Substance: ACETAMINOPHEN
     Indication: Acanthamoeba keratitis
  7. POVIDONE-IODINE [Suspect]
     Active Substance: POVIDONE-IODINE
     Indication: Acanthamoeba keratitis
     Dosage: DROPS EVERY 2 MINUTES FOR A TOTAL OF 10 MINUTES
     Route: 065
  8. OFLOXACIN [Suspect]
     Active Substance: OFLOXACIN
     Indication: Acanthamoeba keratitis
     Dosage: UNK UNK, QH
     Route: 061
  9. OFLOXACIN [Suspect]
     Active Substance: OFLOXACIN
     Dosage: UNK UNK, Q2H
     Route: 061
  10. BACITRACIN\NEOMYCIN\POLYMYXIN B [Suspect]
     Active Substance: BACITRACIN\NEOMYCIN\POLYMYXIN B
     Indication: Acanthamoeba keratitis
     Dosage: UNK, QID (3.5MG/10,000 UNITS FOUR TIMES A DAY)
     Route: 061
  11. BACITRACIN\NEOMYCIN\POLYMYXIN B [Suspect]
     Active Substance: BACITRACIN\NEOMYCIN\POLYMYXIN B
     Dosage: UNK, QID (AT BEDTIME; 3.5MG/10,000 UNITS FOUR TIMES A DAY)
     Route: 061
  12. CHLORHEXIDINE [Suspect]
     Active Substance: CHLORHEXIDINE
     Indication: Acanthamoeba keratitis
     Dosage: UNK, QH
     Route: 061
  13. CHLORHEXIDINE [Suspect]
     Active Substance: CHLORHEXIDINE
     Dosage: UNK UNK, Q2H
     Route: 061
  14. POLIHEXANIDE HYDROCHLORIDE [Suspect]
     Active Substance: POLIHEXANIDE HYDROCHLORIDE
     Indication: Acanthamoeba keratitis
     Dosage: UNK, QH
     Route: 061
  15. POLIHEXANIDE HYDROCHLORIDE [Suspect]
     Active Substance: POLIHEXANIDE HYDROCHLORIDE
     Dosage: UNK, Q2H
     Route: 061
  16. DEXAMETHASONE\NEOMYCIN SULFATE\POLYMYXIN B [Suspect]
     Active Substance: DEXAMETHASONE\NEOMYCIN SULFATE\POLYMYXIN B
     Indication: Acanthamoeba keratitis
     Dosage: 3.5 MG/10,000 UNITS/0.1%
     Route: 061
  17. PROPAMIDINE ISETHIONATE [Suspect]
     Active Substance: PROPAMIDINE ISETHIONATE
     Indication: Acanthamoeba keratitis
     Dosage: UNK
     Route: 065
  18. MILTEFOSINE [Suspect]
     Active Substance: MILTEFOSINE
     Indication: Acanthamoeba keratitis
     Dosage: 50 MILLIGRAM, TID
     Route: 048

REACTIONS (6)
  - Drug ineffective [Unknown]
  - Drug intolerance [Unknown]
  - Abdominal discomfort [Unknown]
  - Treatment noncompliance [Unknown]
  - Eye pain [Unknown]
  - Off label use [Unknown]
